FAERS Safety Report 5159945-X (Version None)
Quarter: 2006Q4

REPORT INFORMATION
  Report Type: 
  Country: None (occurrence: None)
  Receive Date: 20061117
  Receipt Date: 20061109
  Transmission Date: 20070319
  Serious: Yes (Other)
  Sender: FDA-Public Use
  Company Number: 2006114600

PATIENT
  Age: 52 Year
  Sex: Female
  Weight: 54.4316 kg

DRUGS (7)
  1. CHANTIX [Suspect]
     Indication: SMOKING CESSATION THERAPY
     Dosage: ORAL
     Route: 048
     Dates: start: 20060904
  2. VITAMINS [Concomitant]
  3. LAXATIVES [Concomitant]
  4. CALCIUM [Concomitant]
  5. ASCORBIC ACID [Concomitant]
  6. CYANOCOBALAMIN [Concomitant]
  7. SPIRULINA [Concomitant]

REACTIONS (4)
  - DRUG INEFFECTIVE [None]
  - NERVOUSNESS [None]
  - SICK RELATIVE [None]
  - STRESS [None]
